FAERS Safety Report 20311388 (Version 1)
Quarter: 2022Q1

REPORT INFORMATION
  Report Type: Other
  Country: MX (occurrence: None)
  Receive Date: 20220107
  Receipt Date: 20220107
  Transmission Date: 20220423
  Serious: Yes (Other)
  Sender: FDA-Public Use
  Company Number: MX-ROCHE-2978658

PATIENT
  Age: 9 Year
  Sex: Male
  Weight: 29 kg

DRUGS (5)
  1. PULMOZYME [Suspect]
     Active Substance: DORNASE ALFA
     Indication: Cystic fibrosis
     Dosage: DORNASE ALFA (DESOXYRIBONUCLEASE) 2,500 IU / 2.5 ML AT MORNING
     Route: 055
     Dates: start: 20170524
  2. PULMOZYME [Suspect]
     Active Substance: DORNASE ALFA
     Dosage: DORNASE ALFA (DESOXYRIBONUCLEASE) 2,500 IU / 2.5 ML
     Route: 055
     Dates: start: 2018
  3. PULMOZYME [Suspect]
     Active Substance: DORNASE ALFA
     Route: 055
     Dates: start: 2014, end: 2018
  4. TOBRAMYCIN [Concomitant]
     Active Substance: TOBRAMYCIN
     Dosage: 300 MG / 5 ML APPLY 1 VIAL EVERY 12 HOURS FOR 28 DAYS IN ON-OFF CYCLES
     Route: 055
  5. ALBUTEROL [Concomitant]
     Active Substance: ALBUTEROL
     Dosage: APPLY 1 SHOT EVERY 8 HOURS FOR 7 DAY
     Dates: start: 20211204, end: 20211211

REACTIONS (2)
  - Pseudomonas infection [Unknown]
  - Off label use [Unknown]

NARRATIVE: CASE EVENT DATE: 20210922
